FAERS Safety Report 9148613 (Version 1)
Quarter: 2013Q1

REPORT INFORMATION
  Report Type: Spontaneous
  Country: US (occurrence: None)
  Receive Date: 20130228
  Receipt Date: 20130228
  Transmission Date: 20140127
  Serious: No
  Sender: FDA-Public Use
  Company Number: None

PATIENT
  Age: 62 Year
  Sex: Male

DRUGS (16)
  1. REVLIMID 5 MG CELGENE [Suspect]
     Indication: POLYCYTHAEMIA VERA
     Dosage: REVLIMID 5 MG DAILY X21D/28D, ORALLY
     Route: 048
     Dates: start: 201204, end: 201212
  2. REVLIMID 5 MG CELGENE [Suspect]
     Indication: MYELOFIBROSIS
     Dosage: REVLIMID 5 MG DAILY X21D/28D, ORALLY
     Route: 048
     Dates: start: 201204, end: 201212
  3. CARVEDILOL [Concomitant]
  4. LISINOPRIL [Concomitant]
  5. NPH INSULIN [Concomitant]
  6. AMLODIPINE [Concomitant]
  7. CLONIDINE [Concomitant]
  8. LEVOTHYROXINE [Concomitant]
  9. TERAZOSIN [Concomitant]
  10. GLIPIZIDE [Concomitant]
  11. METFORMIN FUROSEMIDE [Concomitant]
  12. KC1 [Concomitant]
  13. HYDROCODONE/APAP [Concomitant]
  14. DOCUSATE SODIUM [Concomitant]
  15. ISONIAZID [Concomitant]
  16. ASA [Concomitant]

REACTIONS (2)
  - Fatigue [None]
  - Bone marrow failure [None]
